FAERS Safety Report 9308701 (Version 1)
Quarter: 2013Q2

REPORT INFORMATION
  Report Type: Spontaneous
  Country: IT (occurrence: IT)
  Receive Date: 20130524
  Receipt Date: 20130524
  Transmission Date: 20140414
  Serious: Yes (Other)
  Sender: FDA-Public Use
  Company Number: PHHY2013IT050572

PATIENT
  Age: 64 Year
  Sex: Male

DRUGS (9)
  1. ATORVASTATIN [Suspect]
     Dosage: 20 MG, DAILY
     Route: 048
     Dates: start: 20100101, end: 20130422
  2. ENALAPRIL [Interacting]
     Dosage: 20 MG, DAILY
     Route: 048
     Dates: start: 20020101, end: 20130415
  3. REPAGLINIDE [Suspect]
     Indication: DIABETES MELLITUS
  4. ALDACTONE [Suspect]
     Dosage: 100 MG, UNK
  5. CARVEDILOL [Suspect]
     Dosage: 25 MG, UNK
  6. RANITIDINE [Suspect]
  7. ANTACAL [Suspect]
     Dosage: 10 MG, UNK
  8. FUROSEMIDE [Concomitant]
  9. CARDIOASPIRIN [Concomitant]
     Indication: ISCHAEMIC CARDIOMYOPATHY
     Dosage: 100 MG, UNK

REACTIONS (2)
  - Pruritus generalised [Recovered/Resolved]
  - Angioedema [Recovered/Resolved]
